FAERS Safety Report 15381017 (Version 3)
Quarter: 2018Q4

REPORT INFORMATION
  Report Type: Report from Study
  Country: US (occurrence: US)
  Receive Date: 20180913
  Receipt Date: 20181205
  Transmission Date: 20190204
  Serious: No
  Sender: FDA-Public Use
  Company Number: PHEH2018US037328

PATIENT
  Sex: Female

DRUGS (1)
  1. COSENTYX [Suspect]
     Active Substance: SECUKINUMAB
     Indication: PSORIATIC ARTHROPATHY
     Dosage: 150 MG, UNK
     Route: 058

REACTIONS (6)
  - Injection site bruising [Unknown]
  - Injection site pain [Unknown]
  - Drug ineffective [Unknown]
  - Psoriasis [Recovered/Resolved]
  - Nasopharyngitis [Unknown]
  - Arthralgia [Unknown]
